FAERS Safety Report 22707494 (Version 10)
Quarter: 2024Q1

REPORT INFORMATION
  Report Type: Spontaneous
  Country: US (occurrence: US)
  Receive Date: 20230714
  Receipt Date: 20240116
  Transmission Date: 20240410
  Serious: No
  Sender: FDA-Public Use
  Company Number: US-PFIZER INC-202300244430

PATIENT
  Age: 13 Year
  Sex: Male
  Weight: 40.816 kg

DRUGS (5)
  1. GENOTROPIN [Suspect]
     Active Substance: SOMATROPIN
     Indication: Growth hormone deficiency
     Dosage: 1.4 MG, DAILY (ONCE DAILY)
     Dates: start: 20230629
  2. GENOTROPIN [Suspect]
     Active Substance: SOMATROPIN
     Dosage: 1.2 MG, DAILY (EVERY NIGHT)
     Dates: start: 20230630
  3. GENOTROPIN [Suspect]
     Active Substance: SOMATROPIN
     Dosage: 1.6 MG, DAILY
  4. GENOTROPIN [Suspect]
     Active Substance: SOMATROPIN
     Dosage: 1.4 MG, DAILY (ONCE DAILY)
     Dates: start: 20230706
  5. GENOTROPIN [Suspect]
     Active Substance: SOMATROPIN
     Dosage: 1.4 MG, DAILY (ONCE DAILY)
     Dates: start: 20230710

REACTIONS (7)
  - Device information output issue [Unknown]
  - Device leakage [Unknown]
  - Device breakage [Unknown]
  - Device malfunction [Unknown]
  - Poor quality device used [Unknown]
  - Device mechanical issue [Unknown]
  - Drug dose omission by device [Unknown]

NARRATIVE: CASE EVENT DATE: 20230707
